FAERS Safety Report 11384548 (Version 1)
Quarter: 2015Q3

REPORT INFORMATION
  Report Type: Spontaneous
  Country: US (occurrence: US)
  Receive Date: 20150811
  Receipt Date: 20150811
  Transmission Date: 20151125
  Serious: No
  Sender: FDA-Public Use
  Company Number: US-ELI_LILLY_AND_COMPANY-US201104003349

PATIENT
  Age: 69 Year
  Sex: Female

DRUGS (4)
  1. METFORMIN [Concomitant]
     Active Substance: METFORMIN HYDROCHLORIDE
  2. DIGOXIN. [Concomitant]
     Active Substance: DIGOXIN
  3. AMLODIPINE [Concomitant]
     Active Substance: AMLODIPINE BESYLATE
     Dosage: 5 MG, UNK
  4. ADCIRCA [Suspect]
     Active Substance: TADALAFIL
     Indication: PULMONARY ARTERIAL HYPERTENSION
     Dosage: 1 DF, UNK
     Dates: start: 20110331, end: 20110405

REACTIONS (4)
  - Eye pruritus [Unknown]
  - Flushing [Unknown]
  - Swelling [Unknown]
  - Chest pain [Unknown]

NARRATIVE: CASE EVENT DATE: 20110405
